FAERS Safety Report 23252675 (Version 1)
Quarter: 2023Q4

REPORT INFORMATION
  Report Type: Spontaneous
  Country: US (occurrence: None)
  Receive Date: 20231201
  Receipt Date: 20231201
  Transmission Date: 20240110
  Serious: Yes (Hospitalization)
  Sender: FDA-Public Use
  Company Number: None

PATIENT
  Age: 53 Year
  Sex: Female
  Weight: 107.1 kg

DRUGS (6)
  1. KEYTRUDA [Suspect]
     Active Substance: PEMBROLIZUMAB
     Indication: Ovarian cancer recurrent
     Dosage: OTHER FREQUENCY : EVERY THREE WEEKS.;?
     Route: 042
     Dates: start: 20231030
  2. KEYTRUDA [Suspect]
     Active Substance: PEMBROLIZUMAB
     Indication: Clinical trial participant
  3. LENVIMA [Suspect]
     Active Substance: LENVATINIB
     Indication: Ovarian cancer recurrent
     Dosage: FREQUENCY : DAILY;?
     Route: 048
     Dates: start: 20231016, end: 20231129
  4. LENVIMA [Suspect]
     Active Substance: LENVATINIB
     Indication: Clinical trial participant
  5. Taxol 60mg/m2 [Concomitant]
     Dosage: FREQUENCY : WEEKLY;?
     Dates: start: 20231016, end: 20231119
  6. Taxol 50mg/m2 [Concomitant]
     Dosage: FREQUENCY : WEEKLY;?
     Dates: start: 20231120

REACTIONS (8)
  - Febrile neutropenia [None]
  - Rash [None]
  - Skin discolouration [None]
  - Oedema [None]
  - Palpatory finding abnormal [None]
  - Tenderness [None]
  - Muscle spasms [None]
  - Muscle spasms [None]

NARRATIVE: CASE EVENT DATE: 20231130
